FAERS Safety Report 7640127-4 (Version None)
Quarter: 2011Q3

REPORT INFORMATION
  Report Type: 
  Country: None (occurrence: None)
  Receive Date: 20110728
  Receipt Date: 20110622
  Transmission Date: 20111222
  Serious: No
  Sender: FDA-Public Use
  Company Number: US-BAYER-2011-055578

PATIENT
  Sex: Female

DRUGS (3)
  1. ALEVE (CAPLET) [Suspect]
     Indication: DYSMENORRHOEA
     Route: 048
  2. PAMPRIN TAB [Concomitant]
  3. IBUPROFEN [Concomitant]

REACTIONS (1)
  - NAUSEA [None]
